FAERS Safety Report 4657188-7 (Version None)
Quarter: 2005Q2

REPORT INFORMATION
  Report Type: 
  Country: None (occurrence: None)
  Receive Date: 20050506
  Receipt Date: 20050425
  Transmission Date: 20051028
  Serious: Yes (Hospitalization)
  Sender: FDA-Public Use
  Company Number: 2005BI004737

PATIENT
  Age: 61 Year
  Sex: Male

DRUGS (1)
  1. AVONEX [Suspect]
     Indication: MULTIPLE SCLEROSIS
     Dosage: IM
     Route: 030
     Dates: start: 19990101

REACTIONS (5)
  - COMPRESSION FRACTURE [None]
  - FALL [None]
  - PHARYNGITIS STREPTOCOCCAL [None]
  - STREPTOCOCCAL SEPSIS [None]
  - THROMBOSIS [None]
